FAERS Safety Report 10679913 (Version 2)
Quarter: 2014Q4

REPORT INFORMATION
  Report Type: Report from Study
  Country: JP (occurrence: JP)
  Receive Date: 20141229
  Receipt Date: 20141229
  Transmission Date: 20150529
  Serious: No
  Sender: FDA-Public Use
  Company Number: JP-EISAI MEDICAL RESEARCH-E2020-14188-SOL-JP

PATIENT
  Age: 76 Year
  Sex: Female

DRUGS (6)
  1. MEMARY [Suspect]
     Active Substance: MEMANTINE HYDROCHLORIDE
     Route: 048
     Dates: start: 20140428, end: 20140518
  2. BAYASPIRIN [Concomitant]
     Active Substance: ASPIRIN
  3. ARICEPT [Suspect]
     Active Substance: DONEPEZIL HYDROCHLORIDE
     Indication: DEMENTIA ALZHEIMER^S TYPE
     Route: 048
     Dates: start: 20140404, end: 20140518
  4. LIVALO [Concomitant]
     Active Substance: PITAVASTATIN CALCIUM
  5. MEMARY [Suspect]
     Active Substance: MEMANTINE HYDROCHLORIDE
     Indication: DEMENTIA ALZHEIMER^S TYPE
     Route: 048
     Dates: start: 20140404, end: 20140427
  6. MUCOSTA [Concomitant]
     Active Substance: REBAMIPIDE

REACTIONS (1)
  - Altered state of consciousness [Recovering/Resolving]

NARRATIVE: CASE EVENT DATE: 20140518
